FAERS Safety Report 8288382-4 (Version None)
Quarter: 2012Q2

REPORT INFORMATION
  Report Type: 
  Country: None (occurrence: None)
  Receive Date: 20120416
  Receipt Date: 20120405
  Transmission Date: 20120825
  Serious: Yes (Death)
  Sender: FDA-Public Use
  Company Number: US-BAXTER-2012BH007732

PATIENT
  Sex: Female

DRUGS (5)
  1. DIANEAL [Suspect]
     Route: 033
     Dates: end: 20120314
  2. DIANEAL LOW CALCIUM W/ DEXTROSE 1.5% [Suspect]
     Indication: PERITONEAL DIALYSIS
     Route: 033
     Dates: end: 20120314
  3. DIANEAL [Suspect]
     Indication: PERITONEAL DIALYSIS
     Route: 033
     Dates: end: 20120314
  4. DIANEAL [Suspect]
     Route: 033
     Dates: end: 20120314
  5. DIANEAL LOW CALCIUM W/ DEXTROSE 1.5% [Suspect]
     Route: 033
     Dates: end: 20120314

REACTIONS (1)
  - MYOCARDIAL INFARCTION [None]
